FAERS Safety Report 8155377-0 (Version None)
Quarter: 2012Q1

REPORT INFORMATION
  Report Type: 
  Country: None (occurrence: None)
  Receive Date: 20120222
  Receipt Date: 20120213
  Transmission Date: 20120608
  Serious: No
  Sender: FDA-Public Use
  Company Number: US-BIOGENIDEC-2012BI005744

PATIENT
  Age: 60 Year
  Sex: Female

DRUGS (6)
  1. AVONEX [Suspect]
     Route: 030
     Dates: start: 20011101
  2. AVONEX [Suspect]
     Route: 030
     Dates: start: 20040803, end: 20051014
  3. AVONEX [Suspect]
     Route: 030
     Dates: start: 20090626
  4. AMPYRA [Concomitant]
     Indication: GAIT DISTURBANCE
     Dates: start: 20110101, end: 20110301
  5. AVONEX [Suspect]
     Route: 030
     Dates: end: 20080224
  6. AVONEX [Suspect]
     Indication: MULTIPLE SCLEROSIS
     Route: 030
     Dates: start: 20000124

REACTIONS (5)
  - INSOMNIA [None]
  - PAIN IN EXTREMITY [None]
  - WEIGHT DECREASED [None]
  - DYSPHEMIA [None]
  - CRYING [None]
